FAERS Safety Report 7824319-7 (Version None)
Quarter: 2011Q4

REPORT INFORMATION
  Report Type: 
  Country: None (occurrence: None)
  Receive Date: 20111018
  Receipt Date: 20111018
  Transmission Date: 20120403
  Serious: Yes (Other)
  Sender: FDA-Public Use
  Company Number: None

PATIENT
  Sex: Female
  Weight: 69.4003 kg

DRUGS (1)
  1. CARVEDILOL [Suspect]
     Dosage: 12.5MG BID ORAL
     Route: 048
     Dates: start: 20110815

REACTIONS (3)
  - RASH [None]
  - DIZZINESS [None]
  - PRURITUS [None]
